FAERS Safety Report 9765057 (Version 1)
Quarter: 2013Q4

REPORT INFORMATION
  Report Type: Spontaneous
  Country: CA (occurrence: None)
  Receive Date: 20131216
  Receipt Date: 20131216
  Transmission Date: 20140711
  Serious: Yes (Other)
  Sender: FDA-Public Use
  Company Number: None

PATIENT
  Age: 33 Year
  Sex: Female
  Weight: 56.7 kg

DRUGS (1)
  1. RANITIDINE [Suspect]
     Indication: ULCER
     Dosage: 1 TWICE DAILY TAKEN BY MOUTH
     Route: 048
     Dates: start: 20131213, end: 20131213

REACTIONS (7)
  - Confusional state [None]
  - Mood swings [None]
  - Dizziness [None]
  - Vision blurred [None]
  - Nausea [None]
  - Decreased appetite [None]
  - Hallucination [None]
